FAERS Safety Report 13076380 (Version 1)
Quarter: 2016Q4

REPORT INFORMATION
  Report Type: Spontaneous
  Country: US (occurrence: US)
  Receive Date: 20161230
  Receipt Date: 20161230
  Transmission Date: 20170207
  Serious: Yes (Death)
  Sender: FDA-Public Use
  Company Number: None

PATIENT
  Age: 67 Year
  Sex: Male

DRUGS (1)
  1. REVLIMID [Suspect]
     Active Substance: LENALIDOMIDE
     Indication: PLASMA CELL MYELOMA
     Route: 048
     Dates: start: 20161130

REACTIONS (6)
  - Blood bilirubin increased [None]
  - Liver function test increased [None]
  - International normalised ratio increased [None]
  - Abdominal distension [None]
  - Blood uric acid increased [None]
  - Pulmonary congestion [None]

NARRATIVE: CASE EVENT DATE: 20161213
